FAERS Safety Report 14536681 (Version 1)
Quarter: 2018Q1

REPORT INFORMATION
  Report Type: Spontaneous
  Country: US (occurrence: US)
  Receive Date: 20180215
  Receipt Date: 20180215
  Transmission Date: 20180509
  Serious: Yes (Hospitalization)
  Sender: FDA-Public Use
  Company Number: None

PATIENT
  Age: 92 Year
  Sex: Female
  Weight: 65.8 kg

DRUGS (10)
  1. APAP [Concomitant]
     Active Substance: ACETAMINOPHEN
  2. THERAGRAN [Concomitant]
     Active Substance: VITAMINS
  3. BEPREVE [Concomitant]
     Active Substance: BEPOTASTINE BESILATE
  4. PRINIVIL [Concomitant]
     Active Substance: LISINOPRIL
  5. PLAVIX [Suspect]
     Active Substance: CLOPIDOGREL BISULFATE
     Indication: CAROTID ARTERY DISEASE
     Route: 048
  6. PROTONIX [Concomitant]
     Active Substance: PANTOPRAZOLE SODIUM
  7. KLOR-CON [Concomitant]
     Active Substance: POTASSIUM CHLORIDE
  8. MELATONIN [Concomitant]
     Active Substance: MELATONIN
  9. PLAVIX [Suspect]
     Active Substance: CLOPIDOGREL BISULFATE
     Indication: CEREBROVASCULAR ACCIDENT
     Route: 048
  10. CRESTOR [Concomitant]
     Active Substance: ROSUVASTATIN CALCIUM

REACTIONS (4)
  - Lethargy [None]
  - Therapy cessation [None]
  - Intraventricular haemorrhage [None]
  - Unresponsive to stimuli [None]

NARRATIVE: CASE EVENT DATE: 20170425
